FAERS Safety Report 10990186 (Version 1)
Quarter: 2015Q2

REPORT INFORMATION
  Report Type: Spontaneous
  Country: JP (occurrence: JP)
  Receive Date: 20150406
  Receipt Date: 20150406
  Transmission Date: 20150821
  Serious: Yes (Other)
  Sender: FDA-Public Use
  Company Number: JP-TEVA-552938ISR

PATIENT
  Age: 10 Year
  Sex: Male
  Weight: 17 kg

DRUGS (5)
  1. FUROSEMIDE. [Suspect]
     Active Substance: FUROSEMIDE
     Dosage: 3 MG/KG/DAY
     Route: 065
  2. TOLVAPTAN [Suspect]
     Active Substance: TOLVAPTAN
     Indication: CARDIAC FAILURE CONGESTIVE
     Dosage: 0.1 MG/KG/DAY
     Route: 065
  3. SPIRONOLACTONE. [Concomitant]
     Active Substance: SPIRONOLACTONE
     Dosage: 3 MG/KG/DAY
     Route: 065
  4. SPIRONOLACTONE. [Concomitant]
     Active Substance: SPIRONOLACTONE
     Dosage: 1.5 MG/KG/DAY, LATER INCREASED TO 3 MG/KG/DAY
     Route: 065
  5. FUROSEMIDE. [Suspect]
     Active Substance: FUROSEMIDE
     Dosage: 1.5 MG/KG/DAY, LATER INCREASED TO 3 MG/KG/DAY
     Route: 065

REACTIONS (4)
  - Renal impairment [Recovering/Resolving]
  - Proteinuria [Recovering/Resolving]
  - Off label use [Recovered/Resolved]
  - Drug ineffective [Recovered/Resolved]
